FAERS Safety Report 9396586 (Version 1)
Quarter: 2013Q3

REPORT INFORMATION
  Report Type: Report from Study
  Country: US (occurrence: US)
  Receive Date: 20130711
  Receipt Date: 20130711
  Transmission Date: 20140515
  Serious: Yes (Hospitalization, Other)
  Sender: FDA-Public Use
  Company Number: US-US-EMD SERONO, INC.-7222730

PATIENT
  Age: 57 Year
  Sex: Female

DRUGS (2)
  1. REBIF [Suspect]
     Indication: MULTIPLE SCLEROSIS
     Route: 058
     Dates: start: 20061229
  2. COUMADIN /00014802/ [Suspect]
     Indication: CARDIAC VALVE DISEASE
     Dates: start: 2007

REACTIONS (5)
  - Gastrointestinal haemorrhage [Unknown]
  - Cardiac valve disease [Unknown]
  - Gastrointestinal ulcer [Unknown]
  - Memory impairment [Not Recovered/Not Resolved]
  - Bone pain [Not Recovered/Not Resolved]
